FAERS Safety Report 4742373-6 (Version None)
Quarter: 2005Q3

REPORT INFORMATION
  Report Type: 
  Country: None (occurrence: None)
  Receive Date: 20050808
  Receipt Date: 20050721
  Transmission Date: 20060218
  Serious: Yes (Hospitalization, Other)
  Sender: FDA-Public Use
  Company Number: CA_050708512

PATIENT
  Age: 47 Year
  Sex: Male

DRUGS (2)
  1. ZYPREXA [Suspect]
     Indication: SLEEP DISORDER
     Dosage: 15 MG AT BEDTIME
  2. XANAX [Concomitant]

REACTIONS (3)
  - GASTRINOMA [None]
  - GASTROENTERITIS NORWALK VIRUS [None]
  - SLEEP WALKING [None]
